FAERS Safety Report 12390768 (Version 1)
Quarter: 2016Q2

REPORT INFORMATION
  Report Type: Spontaneous
  Country: None (occurrence: US)
  Receive Date: 20160520
  Receipt Date: 20160520
  Transmission Date: 20160815
  Serious: Yes (Life-Threatening)
  Sender: FDA-Public Use
  Company Number: US-STANDARD HOMEOPATHIC COMPANY-1052569

PATIENT
  Age: 62 Year
  Sex: Female

DRUGS (3)
  1. HIVES TABLETS [Suspect]
     Active Substance: HOMEOPATHICS
     Indication: SWELLING
     Route: 048
     Dates: start: 20160503, end: 20160506
  2. HIVES TABLETS [Suspect]
     Active Substance: HOMEOPATHICS
     Indication: ERYTHEMA
     Route: 048
     Dates: start: 20160503, end: 20160506
  3. HIVES TABLETS [Suspect]
     Active Substance: HOMEOPATHICS
     Indication: RASH PRURITIC
     Route: 048
     Dates: start: 20160503, end: 20160506

REACTIONS (3)
  - Dyspnoea [Unknown]
  - Hypersensitivity [Unknown]
  - Micturition disorder [Unknown]

NARRATIVE: CASE EVENT DATE: 20160506
